FAERS Safety Report 6153338-4 (Version None)
Quarter: 2009Q2

REPORT INFORMATION
  Report Type: 
  Country: None (occurrence: None)
  Receive Date: 20090413
  Receipt Date: 20090409
  Transmission Date: 20091009
  Serious: No
  Sender: FDA-Public Use
  Company Number: US-B.I. PHARMACEUTICALS,INC./RIDGEFIELD-2009-BP-04464BP

PATIENT

DRUGS (7)
  1. VIRAMUNE [Suspect]
     Indication: HIV INFECTION
     Dosage: 400MG
     Route: 048
     Dates: start: 20080901
  2. LAMIVUDINE [Suspect]
     Indication: HIV INFECTION
     Dates: start: 20080901
  3. ZIDOVUDINE [Suspect]
     Indication: HIV INFECTION
     Dates: start: 20080901
  4. COTRIMOXAZOLE [Concomitant]
     Indication: OPPORTUNISTIC INFECTION PROPHYLAXIS
  5. ASCORBIC ACID [Concomitant]
     Dosage: 500MG
  6. SELENIUM [Concomitant]
     Dosage: 50MCG
  7. MULTI-VITAMINS [Concomitant]

REACTIONS (1)
  - CD4 LYMPHOCYTES ABNORMAL [None]
